FAERS Safety Report 5846515-0 (Version None)
Quarter: 2008Q3

REPORT INFORMATION
  Report Type: 
  Country: None (occurrence: None)
  Receive Date: 20080815
  Receipt Date: 20080702
  Transmission Date: 20090109
  Serious: No
  Sender: FDA-Public Use
  Company Number: US-EISAI MEDICAL RESEARCH-E2090-00481-SPO-US

PATIENT
  Sex: Male
  Weight: 58 kg

DRUGS (4)
  1. ZONEGRAN [Suspect]
     Indication: EPILEPSY
     Dosage: UP TITRATION FROM 100 MG TO 700 MG
     Route: 048
     Dates: start: 20070101, end: 20080501
  2. ZONEGRAN [Suspect]
     Route: 048
     Dates: start: 20080501, end: 20080501
  3. ZONEGRAN [Suspect]
     Route: 048
     Dates: start: 20080501
  4. KEPPRA [Concomitant]
     Route: 048

REACTIONS (1)
  - WHITE BLOOD CELL COUNT DECREASED [None]
